FAERS Safety Report 6209040-3 (Version None)
Quarter: 2009Q2

REPORT INFORMATION
  Report Type: 
  Country: None (occurrence: None)
  Receive Date: 20090522
  Receipt Date: 20090206
  Transmission Date: 20091009
  Serious: No
  Sender: FDA-Public Use
  Company Number: 8042735

PATIENT
  Age: 58 Year
  Sex: Male
  Weight: 78.1 kg

DRUGS (4)
  1. CIMZIA [Suspect]
     Indication: CROHN'S DISEASE
     Dosage: 400 MG SC
     Route: 058
     Dates: start: 20090203
  2. ACIPHEX [Concomitant]
  3. ASACOL [Concomitant]
  4. VICODIN [Concomitant]

REACTIONS (7)
  - DIZZINESS [None]
  - FLUSHING [None]
  - HEADACHE [None]
  - LETHARGY [None]
  - MYALGIA [None]
  - SOMNOLENCE [None]
  - VISION BLURRED [None]
